FAERS Safety Report 7649228-8 (Version None)
Quarter: 2011Q3

REPORT INFORMATION
  Report Type: 
  Country: None (occurrence: None)
  Receive Date: 20110726
  Receipt Date: 20110720
  Transmission Date: 20111222
  Serious: Yes (Death)
  Sender: FDA-Public Use
  Company Number: 2010003784

PATIENT
  Age: 86 Year
  Sex: Female

DRUGS (2)
  1. TARCEVA [Suspect]
     Indication: LUNG CARCINOMA CELL TYPE UNSPECIFIED STAGE 0
     Dosage: 150 UG, UID/QD, ORAL ; 50 MG, UID/QD, ORAL
     Route: 048
     Dates: start: 20100707
  2. TARCEVA [Suspect]
     Indication: LUNG CARCINOMA CELL TYPE UNSPECIFIED STAGE 0
     Dosage: 150 UG, UID/QD, ORAL ; 50 MG, UID/QD, ORAL
     Route: 048
     Dates: start: 20100908

REACTIONS (9)
  - FATIGUE [None]
  - RASH [None]
  - SKIN EXFOLIATION [None]
  - EYE SWELLING [None]
  - EYE INFECTION [None]
  - LUNG NEOPLASM MALIGNANT [None]
  - DECREASED APPETITE [None]
  - NAUSEA [None]
  - DIARRHOEA [None]
